FAERS Safety Report 4891902-0 (Version None)
Quarter: 2006Q1

REPORT INFORMATION
  Report Type: 
  Country: None (occurrence: None)
  Receive Date: 20060124
  Receipt Date: 20060112
  Transmission Date: 20060701
  Serious: Yes (Hospitalization)
  Sender: FDA-Public Use
  Company Number: 2005026812

PATIENT
  Age: 34 Year
  Sex: Male
  Weight: 76 kg

DRUGS (4)
  1. PREGABALIN (PREGABALIN) [Suspect]
     Indication: PARTIAL SEIZURES
     Dosage: 600 MG (300 MG, 2 IN 1 D), ORAL
     Route: 048
     Dates: start: 20040331
  2. CARBAMAZEPINE [Concomitant]
  3. LEVETIRACETAM [Concomitant]
  4. TOPIRAMATE [Concomitant]

REACTIONS (2)
  - HALLUCINATION, AUDITORY [None]
  - PSYCHOTIC DISORDER [None]
